FAERS Safety Report 7150907-X (Version None)
Quarter: 2010Q4

REPORT INFORMATION
  Report Type: 
  Country: None (occurrence: None)
  Receive Date: 20101210
  Receipt Date: 20101202
  Transmission Date: 20110411
  Serious: Yes (Hospitalization)
  Sender: FDA-Public Use
  Company Number: BR-ROCHE-746324

PATIENT
  Sex: Female
  Weight: 70 kg

DRUGS (14)
  1. TOCILIZUMAB [Suspect]
     Indication: RHEUMATOID ARTHRITIS
     Dosage: ONE INFUSION; ROUTE ENDOVENOUS
     Route: 042
     Dates: start: 20100809, end: 20100809
  2. AMITRIPTYLINE [Concomitant]
  3. FOLIC ACID [Concomitant]
  4. FAMOTIDINE [Concomitant]
  5. DOMPERIDONE [Concomitant]
  6. DEFLAZACORT [Concomitant]
     Dosage: DEFLAZACORTE
  7. METHOTREXATE [Concomitant]
     Dosage: METOTREXATE
  8. DIGOXIN [Concomitant]
  9. SPIRONOLACTONE [Concomitant]
  10. OMEPRAZOLE [Concomitant]
  11. FUROSEMIDE [Concomitant]
  12. CARVEDILOL [Concomitant]
  13. LOSARTAN [Concomitant]
  14. AAS [Concomitant]

REACTIONS (4)
  - ARTHRALGIA [None]
  - MALAISE [None]
  - PULMONARY OEDEMA [None]
  - THERAPEUTIC RESPONSE DECREASED [None]
